FAERS Safety Report 5598795-7 (Version None)
Quarter: 2008Q1

REPORT INFORMATION
  Report Type: 
  Country: None (occurrence: None)
  Receive Date: 20080122
  Receipt Date: 20080117
  Transmission Date: 20080703
  Serious: Yes (Other)
  Sender: FDA-Public Use
  Company Number: US-ABBOTT-08P-163-0434078-00

PATIENT
  Sex: Female
  Weight: 74.456 kg

DRUGS (3)
  1. HUMIRA [Suspect]
     Indication: CROHN'S DISEASE
     Route: 050
     Dates: start: 20070506
  2. PRENATAL VITAMINS [Concomitant]
     Indication: DRUG USE FOR UNKNOWN INDICATION
     Route: 048
     Dates: start: 20070606
  3. COFFEE [Concomitant]
     Indication: DRUG USE FOR UNKNOWN INDICATION
     Dosage: 1 SERVING
     Route: 048
     Dates: start: 20070606

REACTIONS (3)
  - ABORTION SPONTANEOUS [None]
  - DYSPEPSIA [None]
  - HEADACHE [None]
